FAERS Safety Report 24798875 (Version 2)
Quarter: 2025Q3

REPORT INFORMATION
  Report Type: Spontaneous
  Country: EU (occurrence: EU)
  Receive Date: 20250102
  Receipt Date: 20250803
  Transmission Date: 20251021
  Serious: Yes (Other)
  Sender: ALEXION PHARMACEUTICALS
  Company Number: EU-PFM-2024-05103

PATIENT
  Age: 76 Year
  Sex: Female

DRUGS (5)
  1. ESOMEPRAZOLE [Suspect]
     Active Substance: ESOMEPRAZOLE
     Indication: Dyspepsia
     Dosage: 20 MILLIGRAM, 1/DAY
     Route: 065
     Dates: start: 202212
  2. PROPRANOLOL [Suspect]
     Active Substance: PROPRANOLOL HYDROCHLORIDE
     Indication: Product used for unknown indication
     Dosage: 40 MILLIGRAM, 1/DAY
     Route: 065
     Dates: start: 202212
  3. ACETYLLEUCINE [Suspect]
     Active Substance: ACETYLLEUCINE
     Indication: Tinnitus
     Dosage: 1 DOSAGE FORM, 3/DAY
     Dates: start: 20240913, end: 20240913
  4. ACETYLLEUCINE [Suspect]
     Active Substance: ACETYLLEUCINE
     Indication: Tinnitus
  5. LORAZEPAM [Suspect]
     Active Substance: LORAZEPAM
     Indication: Insomnia
     Dosage: 1 MILLIGRAM, 1/DAY
     Route: 065
     Dates: start: 202301

REACTIONS (3)
  - Respiratory depression [Recovered/Resolved]
  - Chest discomfort [Recovered/Resolved]
  - Hypersensitivity [Recovered/Resolved]

NARRATIVE: CASE EVENT DATE: 20240913
